FAERS Safety Report 11768832 (Version 3)
Quarter: 2016Q2

REPORT INFORMATION
  Report Type: Spontaneous
  Country: PT (occurrence: PT)
  Receive Date: 20151123
  Receipt Date: 20160525
  Transmission Date: 20160815
  Serious: Yes (Other)
  Sender: FDA-Public Use
  Company Number: PT-ABBVIE-15P-130-1500076-00

PATIENT

DRUGS (8)
  1. MIMPARA [Concomitant]
     Active Substance: CINACALCET HYDROCHLORIDE
     Indication: CHRONIC KIDNEY DISEASE
     Route: 065
     Dates: end: 20150925
  2. FENTANYL. [Concomitant]
     Active Substance: FENTANYL
     Indication: PAIN
     Dosage: 50 MICROGRAMS/ONE EVERY 72 HOURS
     Route: 065
     Dates: start: 20140214, end: 20150925
  3. COPEGUS [Concomitant]
     Active Substance: RIBAVIRIN
     Indication: HEPATITIS C
     Dosage: 200 MILLIGRAMS
     Route: 065
     Dates: start: 20150925, end: 20150925
  4. FOLIC ACID. [Concomitant]
     Active Substance: FOLIC ACID
     Indication: NEPHROGENIC ANAEMIA
     Route: 065
     Dates: end: 20150925
  5. VIEKIRAX [Suspect]
     Active Substance: OMBITASVIR\PARITAPREVIR\RITONAVIR
     Indication: HEPATITIS C
     Route: 048
     Dates: start: 20150925
  6. DAGRAVIT B COMPLEX [Concomitant]
     Indication: CHRONIC KIDNEY DISEASE
     Route: 065
     Dates: end: 20150925
  7. OSVAREN [Concomitant]
     Active Substance: CALCIUM ACETATE\MAGNESIUM CARBONATE
     Indication: CHRONIC KIDNEY DISEASE
     Dosage: CALCIUM ACETATE 435 MG + HEAVY MAGNESIUM CARBONATE 235MG
     Route: 065
     Dates: end: 20150925
  8. ETALPHA [Concomitant]
     Active Substance: ALFACALCIDOL
     Indication: CHRONIC KIDNEY DISEASE
     Route: 065
     Dates: end: 20150925

REACTIONS (5)
  - Vomiting [Recovered/Resolved]
  - Alanine aminotransferase increased [Recovered/Resolved]
  - Haemoglobin decreased [Unknown]
  - Faeces discoloured [Recovered/Resolved]
  - Aspartate aminotransferase increased [Recovered/Resolved]

NARRATIVE: CASE EVENT DATE: 20150925
